FAERS Safety Report 20937728 (Version 1)
Quarter: 2022Q2

REPORT INFORMATION
  Report Type: Spontaneous
  Country: IE (occurrence: IE)
  Receive Date: 20220609
  Receipt Date: 20220609
  Transmission Date: 20220721
  Serious: Yes (Disabling, Congenital Anomaly, Other)
  Sender: FDA-Public Use
  Company Number: IE-ABBVIE-22K-229-4427318-00

PATIENT
  Sex: Male

DRUGS (2)
  1. EPILIM [Suspect]
     Active Substance: VALPROATE SODIUM
     Indication: Maternal exposure timing unspecified
     Route: 064
  2. EPILIM [Suspect]
     Active Substance: VALPROATE SODIUM
     Indication: Maternal exposure timing unspecified
     Route: 064

REACTIONS (25)
  - Cardiac murmur [Unknown]
  - Eye disorder [Unknown]
  - Foetal anticonvulsant syndrome [Unknown]
  - Hypertrichosis [Unknown]
  - Mental impairment [Unknown]
  - Developmental delay [Unknown]
  - Lip disorder [Unknown]
  - Impaired quality of life [Unknown]
  - Dysmorphism [Unknown]
  - Ankyloglossia congenital [Unknown]
  - Low set ears [Unknown]
  - Body height abnormal [Unknown]
  - Central nervous system lesion [Unknown]
  - Cerebral palsy [Unknown]
  - Stridor [Unknown]
  - Cerebrovascular accident [Unknown]
  - Intellectual disability [Unknown]
  - Learning disorder [Unknown]
  - Dyspraxia [Unknown]
  - Unevaluable event [Unknown]
  - Speech disorder developmental [Unknown]
  - Autism spectrum disorder [Unknown]
  - Impulsive behaviour [Unknown]
  - Tremor [Unknown]
  - Foetal exposure during pregnancy [Unknown]

NARRATIVE: CASE EVENT DATE: 20140101
